FAERS Safety Report 16168448 (Version 1)
Quarter: 2019Q2

REPORT INFORMATION
  Report Type: Spontaneous
  Country: BY (occurrence: BY)
  Receive Date: 20190408
  Receipt Date: 20190408
  Transmission Date: 20190711
  Serious: Yes (Other)
  Sender: FDA-Public Use
  Company Number: BY-BAYER-2019-060666

PATIENT
  Age: 48 Year
  Sex: Male
  Weight: 78.4 kg

DRUGS (19)
  1. CARBAMAZEPINE. [Concomitant]
     Active Substance: CARBAMAZEPINE
     Dosage: UNK
     Dates: start: 20181024, end: 20181228
  2. GABAGAMMA [Concomitant]
     Active Substance: GABAPENTIN
     Dosage: UNK
     Dates: start: 20181024, end: 20181028
  3. PYRAZINAMIDE. [Suspect]
     Active Substance: PYRAZINAMIDE
     Indication: TUBERCULOSIS
     Dosage: UNK
     Dates: start: 201810, end: 20181228
  4. METOPROLOL. [Concomitant]
     Active Substance: METOPROLOL
     Dosage: UNK
     Dates: start: 20170712, end: 20181004
  5. CARBAMAZEPINE. [Concomitant]
     Active Substance: CARBAMAZEPINE
     Dosage: UNK
     Dates: start: 20170712, end: 20170725
  6. AVELOX [Suspect]
     Active Substance: MOXIFLOXACIN HYDROCHLORIDE
     Indication: TUBERCULOSIS
     Dosage: 400 MG
     Route: 048
     Dates: start: 20170712, end: 20181228
  7. DELAMANID [Suspect]
     Active Substance: DELAMANID
     Indication: TUBERCULOSIS
     Dosage: 200 MG, QD
     Route: 048
     Dates: start: 20170712, end: 20181228
  8. LINEZOLID. [Suspect]
     Active Substance: LINEZOLID
     Indication: TUBERCULOSIS
     Dosage: 600 MG, QD
     Route: 048
     Dates: start: 20170712, end: 20181228
  9. ADEMETIONINE [Concomitant]
     Active Substance: ADEMETIONINE
     Dosage: UNK
     Dates: start: 20181024, end: 20190130
  10. METOPROLOL. [Concomitant]
     Active Substance: METOPROLOL
     Dosage: UNK
     Dates: start: 201901, end: 20190214
  11. FLUCONAZOLE. [Concomitant]
     Active Substance: FLUCONAZOLE
     Dosage: UNK
     Dates: start: 20171027, end: 20180117
  12. FLUCONAZOLE. [Concomitant]
     Active Substance: FLUCONAZOLE
     Dosage: UNK
     Dates: start: 201801, end: 20181228
  13. VINPOCETINE [Concomitant]
     Active Substance: VINPOCETINE
     Dosage: UNK
     Dates: start: 20181003, end: 20181103
  14. PYRAZINAMIDE. [Suspect]
     Active Substance: PYRAZINAMIDE
     Indication: TUBERCULOSIS
     Dosage: 2000 MG
     Route: 048
     Dates: start: 20170712, end: 20181228
  15. CARBAMAZEPINE. [Concomitant]
     Active Substance: CARBAMAZEPINE
     Dosage: UNK
     Dates: start: 201707, end: 20170814
  16. AMIKACIN. [Concomitant]
     Active Substance: AMIKACIN
     Dosage: UNK
  17. METOPROLOL. [Concomitant]
     Active Substance: METOPROLOL
     Dosage: UNK
     Dates: start: 201810, end: 20190108
  18. CLOFAZIMINE [Suspect]
     Active Substance: CLOFAZIMINE
     Indication: TUBERCULOSIS
     Dosage: 100 MG, QD
     Route: 048
     Dates: start: 20170712, end: 20181228
  19. INDAPAMIDE. [Concomitant]
     Active Substance: INDAPAMIDE
     Dosage: UNK
     Dates: start: 20081121, end: 20181228

REACTIONS (11)
  - Drug-induced liver injury [Not Recovered/Not Resolved]
  - Ocular icterus [None]
  - Decreased appetite [None]
  - Asthenia [None]
  - Hepatitis B surface antibody positive [Unknown]
  - Pruritus [None]
  - Gastrointestinal mucosa hyperaemia [Unknown]
  - Skin discolouration [None]
  - Nausea [None]
  - Rash macular [None]
  - Hepatic failure [Unknown]

NARRATIVE: CASE EVENT DATE: 20171228
